FAERS Safety Report 9890262 (Version 3)
Quarter: 2014Q1

REPORT INFORMATION
  Report Type: Report from Study
  Country: PL (occurrence: PL)
  Receive Date: 20140212
  Receipt Date: 20140311
  Transmission Date: 20141002
  Serious: Yes (Other)
  Sender: FDA-Public Use
  Company Number: PL-AMGEN-POLCT2014009298

PATIENT
  Age: 62 Year
  Sex: Female

DRUGS (13)
  1. ETANERCEPT [Suspect]
     Indication: RHEUMATOID ARTHRITIS
     Dosage: 50 MG QWK (50 MG ON 27/JUN/2012 (50 MG,1 IN 1 WK))
     Route: 058
  2. ENARENAL [Concomitant]
     Indication: HYPERTENSION
     Dosage: 10 MG, 2X/DAY
     Route: 048
     Dates: start: 2009
  3. METHOTREXATE [Concomitant]
     Indication: RHEUMATOID ARTHRITIS
     Dosage: 20 MG, WEEKLY
     Route: 058
     Dates: start: 20111001
  4. FOLIC ACID [Concomitant]
     Dosage: 15 MG, WEEKLY
     Route: 048
  5. METHYLPREDNISOLONE SODIUM SUCCINATE [Concomitant]
     Indication: RHEUMATOID ARTHRITIS
     Dosage: 4 MG, DAILY
     Route: 048
     Dates: start: 2008
  6. RISENDROS [Concomitant]
     Indication: OSTEOPOROSIS
     Dosage: 35 MG, WEEKLY
     Route: 048
     Dates: start: 20111122
  7. CALPEROS                           /07357001/ [Concomitant]
     Indication: OSTEOPOROSIS
     Dosage: 1000 MG, 2X/DAY
     Route: 048
     Dates: start: 20111122
  8. ALFACALCIDOL [Concomitant]
     Indication: OSTEOPOROSIS
     Dosage: 1 UG, 2X/DAY
     Route: 048
     Dates: start: 20111122
  9. PANTOPRAZOLE [Concomitant]
     Dosage: 20 MG, DAILY
     Route: 048
     Dates: start: 20110713
  10. STAVERAN [Concomitant]
     Dosage: 40 MG, 3X/DAY
     Route: 048
     Dates: start: 20081204
  11. THEOPHYLLINE [Concomitant]
     Indication: CHRONIC OBSTRUCTIVE PULMONARY DISEASE
     Dosage: 300 MG, DAILY
     Route: 048
     Dates: start: 20081204
  12. FORMOTEROL FUMARATE [Concomitant]
     Indication: CHRONIC OBSTRUCTIVE PULMONARY DISEASE
     Dosage: 12 MG, 2X/DAY
     Dates: start: 20081204
  13. ATROVENT N [Concomitant]
     Indication: CHRONIC OBSTRUCTIVE PULMONARY DISEASE
     Dosage: 20 MG, TID
     Dates: start: 20081204

REACTIONS (1)
  - Silent myocardial infarction [Recovered/Resolved]
